FAERS Safety Report 7803093-4 (Version None)
Quarter: 2011Q4

REPORT INFORMATION
  Report Type: 
  Country: None (occurrence: None)
  Receive Date: 20111007
  Receipt Date: 20110927
  Transmission Date: 20120403
  Serious: Yes (Hospitalization)
  Sender: FDA-Public Use
  Company Number: CA-JNJFOC-20111001889

PATIENT
  Sex: Female
  Weight: 83 kg

DRUGS (1)
  1. STELARA [Suspect]
     Indication: PSORIASIS
     Route: 058
     Dates: end: 20110811

REACTIONS (2)
  - URINARY TRACT INFECTION [None]
  - BACTERAEMIA [None]
